FAERS Safety Report 7340338-1 (Version None)
Quarter: 2011Q1

REPORT INFORMATION
  Report Type: 
  Country: None (occurrence: None)
  Receive Date: 20110309
  Receipt Date: 20110225
  Transmission Date: 20110831
  Serious: No
  Sender: FDA-Public Use
  Company Number: US-BIOGENIDEC-2011BI005585

PATIENT
  Age: 40 Year
  Sex: Male

DRUGS (2)
  1. TYSABRI [Suspect]
     Indication: MULTIPLE SCLEROSIS
     Route: 042
     Dates: start: 20101202, end: 20110126
  2. AVONEX [Concomitant]
     Indication: MULTIPLE SCLEROSIS
     Route: 030
     Dates: start: 20090913

REACTIONS (13)
  - FEELING COLD [None]
  - SOMNOLENCE [None]
  - GAIT DISTURBANCE [None]
  - DIZZINESS [None]
  - BALANCE DISORDER [None]
  - MULTIPLE SCLEROSIS [None]
  - DRUG INEFFECTIVE [None]
  - MEMORY IMPAIRMENT [None]
  - FATIGUE [None]
  - VISION BLURRED [None]
  - JUDGEMENT IMPAIRED [None]
  - ADVERSE EVENT [None]
  - DYSARTHRIA [None]
